FAERS Safety Report 9314775 (Version 4)
Quarter: 2013Q3

REPORT INFORMATION
  Report Type: Spontaneous
  Country: NL (occurrence: NL)
  Receive Date: 20130529
  Receipt Date: 20130911
  Transmission Date: 20140515
  Serious: Yes (Hospitalization, Other)
  Sender: FDA-Public Use
  Company Number: NL-ELI_LILLY_AND_COMPANY-NL201305005104

PATIENT
  Age: 38 Year
  Sex: Male

DRUGS (8)
  1. CYMBALTA [Suspect]
     Indication: DEPRESSION
     Dosage: 60 MG, QD
     Dates: start: 201208, end: 20130515
  2. CYMBALTA [Suspect]
     Indication: SOMATOFORM DISORDER
  3. CYMBALTA [Suspect]
     Indication: AGGRESSION
  4. CYMBALTA [Suspect]
     Indication: ATTENTION DEFICIT/HYPERACTIVITY DISORDER
  5. WELLBUTRIN [Suspect]
     Indication: ATTENTION DEFICIT/HYPERACTIVITY DISORDER
     Dosage: 150 MG, QD
     Dates: start: 201304
  6. WELLBUTRIN [Suspect]
     Indication: SOMATOFORM DISORDER
  7. WELLBUTRIN [Suspect]
     Indication: AGGRESSION
  8. WELLBUTRIN [Suspect]
     Indication: DEPRESSION

REACTIONS (1)
  - Type 1 diabetes mellitus [Recovering/Resolving]
